FAERS Safety Report 5058229-8 (Version None)
Quarter: 2006Q2

REPORT INFORMATION
  Report Type: 
  Country: None (occurrence: None)
  Receive Date: 20060622
  Receipt Date: 20060113
  Transmission Date: 20061013
  Serious: Yes (Hospitalization)
  Sender: FDA-Public Use
  Company Number: US-JNJFOC-20051204005

PATIENT
  Age: 61 Year
  Sex: Female
  Weight: 72.5755 kg

DRUGS (10)
  1. DURAGESIC-100 [Suspect]
     Indication: PAIN
     Dosage: 75 UG/HR, 1 IN 72 HOUR, TRANSDERMAL
     Route: 062
     Dates: start: 20030101
  2. FENTANYL [Suspect]
     Indication: PAIN
     Dosage: 75 UG/HR, 1 IN 72 HOUR, TRANSDERMAL
     Route: 062
     Dates: start: 20050101, end: 20050101
  3. FLEXERIL (TABLET) CYCLOBENZAPRINE HYDROCHLORIDE [Concomitant]
  4. NEURONTIN (TABLET) GABAPENTIN [Concomitant]
  5. INDOCET (TABLET) INDOMETACIN [Concomitant]
  6. NAPROXEN [Concomitant]
  7. PREMARIN [Concomitant]
  8. DEPO-ESTRADIOL (DEPO-ESTRADIOL) INJECTION [Concomitant]
  9. NORVASC [Concomitant]
  10. MEPROBAMATE [Concomitant]

REACTIONS (9)
  - BACK PAIN [None]
  - DIZZINESS [None]
  - FALL [None]
  - INTERVERTEBRAL DISC DEGENERATION [None]
  - INTERVERTEBRAL DISC PROTRUSION [None]
  - LABORATORY TEST ABNORMAL [None]
  - MENTAL IMPAIRMENT [None]
  - OSTEOPOROSIS [None]
  - RED BLOOD CELL COUNT DECREASED [None]
